FAERS Safety Report 6074138-X (Version None)
Quarter: 2009Q1

REPORT INFORMATION
  Report Type: 
  Country: None (occurrence: None)
  Receive Date: 20090211
  Receipt Date: 20090205
  Transmission Date: 20090719
  Serious: Yes (Hospitalization)
  Sender: FDA-Public Use
  Company Number: B0558692A

PATIENT
  Age: 72 Year
  Sex: Male

DRUGS (4)
  1. ZINACEF [Suspect]
     Indication: DRUG USE FOR UNKNOWN INDICATION
     Route: 042
     Dates: start: 20081101, end: 20081101
  2. KAVEPENIN [Suspect]
     Indication: PNEUMONIA
     Route: 048
     Dates: start: 20081101, end: 20081119
  3. SELOKEN [Concomitant]
  4. TROMBYL [Concomitant]

REACTIONS (7)
  - ADVERSE DRUG REACTION [None]
  - EYELID OEDEMA [None]
  - INFECTION [None]
  - OEDEMA [None]
  - OEDEMA PERIPHERAL [None]
  - PRURITUS [None]
  - RASH [None]
